FAERS Safety Report 7319545-X (Version None)
Quarter: 2011Q1

REPORT INFORMATION
  Report Type: 
  Country: None (occurrence: None)
  Receive Date: 20110228
  Receipt Date: 20100511
  Transmission Date: 20110831
  Serious: Yes (Other)
  Sender: FDA-Public Use
  Company Number: A0859144A

PATIENT
  Age: 39 Year
  Sex: Female

DRUGS (3)
  1. WELLBUTRIN XL [Suspect]
     Indication: DEPRESSION
     Dosage: 1TAB PER DAY
     Route: 048
     Dates: start: 20060101, end: 20060101
  2. NO CONCURRENT MEDICATION [Concomitant]
  3. LAMOTRIGINE [Suspect]
     Indication: BIPOLAR DISORDER
     Route: 050

REACTIONS (10)
  - TREMOR [None]
  - HYPERTENSION [None]
  - ANXIETY [None]
  - MORBID THOUGHTS [None]
  - HOT FLUSH [None]
  - FATIGUE [None]
  - SUICIDAL IDEATION [None]
  - HEADACHE [None]
  - NAUSEA [None]
  - ANGER [None]
